FAERS Safety Report 7166999-8 (Version None)
Quarter: 2010Q4

REPORT INFORMATION
  Report Type: 
  Country: None (occurrence: None)
  Receive Date: 20101216
  Receipt Date: 20101213
  Transmission Date: 20110411
  Serious: Yes (Death)
  Sender: FDA-Public Use
  Company Number: A0899539A

PATIENT
  Age: 83 Year
  Sex: Female

DRUGS (3)
  1. ROPINIROLE [Suspect]
     Indication: PARKINSON'S DISEASE
     Dosage: 1MG TWICE PER DAY
     Route: 048
     Dates: start: 20100701, end: 20101101
  2. SINEMET [Concomitant]
  3. VITAMINS [Concomitant]

REACTIONS (1)
  - CARDIAC ARREST [None]
